FAERS Safety Report 5766279-9 (Version None)
Quarter: 2008Q2

REPORT INFORMATION
  Report Type: 
  Country: None (occurrence: None)
  Receive Date: 20080606
  Receipt Date: 20080522
  Transmission Date: 20081010
  Serious: Yes (Hospitalization)
  Sender: FDA-Public Use
  Company Number: 2008AL005791

PATIENT
  Age: 73 Year
  Sex: Female
  Weight: 61.2356 kg

DRUGS (14)
  1. DIGOXIN [Suspect]
     Indication: ATRIAL FIBRILLATION
     Dosage: 0.125MG,QD,PO
     Route: 048
  2. ASPIRIN [Concomitant]
  3. ASACOL [Concomitant]
  4. CALTRATE [Concomitant]
  5. EVISTA [Concomitant]
  6. LASIX [Concomitant]
  7. NEURONTIN [Concomitant]
  8. KLOR-CON [Concomitant]
  9. LOVASTATIN [Concomitant]
  10. MAGNESIUM [Concomitant]
  11. METOPROLOL [Concomitant]
  12. PRILOSEC [Concomitant]
  13. VERAPAMIL [Concomitant]
  14. TYLENOL W/ CODEINE NO. 3 [Concomitant]

REACTIONS (5)
  - CARDIOACTIVE DRUG LEVEL INCREASED [None]
  - DEHYDRATION [None]
  - DIARRHOEA [None]
  - RENAL FAILURE [None]
  - VOMITING [None]
